FAERS Safety Report 9781672 (Version 1)
Quarter: 2013Q4

REPORT INFORMATION
  Report Type: Spontaneous
  Country: GB (occurrence: GB)
  Receive Date: 20131224
  Receipt Date: 20131224
  Transmission Date: 20140711
  Serious: Yes (Hospitalization)
  Sender: FDA-Public Use
  Company Number: PHFR2013GB007341

PATIENT
  Sex: Male

DRUGS (2)
  1. CLOZARIL [Suspect]
     Indication: SCHIZOPHRENIA
     Dosage: UNK
     Dates: start: 20030124
  2. CLARITHROMYCIN [Interacting]
     Indication: SEPSIS
     Dosage: UNK

REACTIONS (2)
  - Drug interaction [Unknown]
  - White blood cell count decreased [Unknown]
